FAERS Safety Report 9322613 (Version 1)
Quarter: 2013Q2

REPORT INFORMATION
  Report Type: Spontaneous
  Country: US (occurrence: US)
  Receive Date: 20130531
  Receipt Date: 20130531
  Transmission Date: 20140414
  Serious: No
  Sender: FDA-Public Use
  Company Number: US-ASTRAZENECA-2013SE36222

PATIENT
  Sex: Male

DRUGS (4)
  1. SYMBICORT [Suspect]
     Indication: EMPHYSEMA
     Dosage: 160/4.5 MCG , 2 PUFFS BID
     Route: 055
     Dates: start: 20130520
  2. SYMBICORT [Suspect]
     Indication: EMPHYSEMA
     Dosage: 2 PUFFS, THIS MORNING
     Route: 055
  3. ADVAIR [Concomitant]
     Indication: EMPHYSEMA
  4. OXYGEN [Concomitant]
     Indication: SLEEP DISORDER
     Route: 055

REACTIONS (8)
  - Dyspnoea [Unknown]
  - Dyspnoea [Unknown]
  - Oxygen saturation decreased [Unknown]
  - Gait disturbance [Unknown]
  - Pollakiuria [Unknown]
  - Heart rate increased [Unknown]
  - Off label use [Unknown]
  - Drug ineffective [Unknown]
